FAERS Safety Report 21809428 (Version 1)
Quarter: 2023Q1

REPORT INFORMATION
  Report Type: Report from Study
  Country: US (occurrence: US)
  Receive Date: 20230103
  Receipt Date: 20230103
  Transmission Date: 20230417
  Serious: No
  Sender: FDA-Public Use
  Company Number: US-ABBVIE-4206905

PATIENT
  Sex: Male
  Weight: 82.554 kg

DRUGS (15)
  1. RINVOQ [Suspect]
     Active Substance: UPADACITINIB
     Indication: Illness
     Route: 048
     Dates: start: 20221026
  2. BACLOFEN [Concomitant]
     Active Substance: BACLOFEN
     Indication: Product used for unknown indication
  3. TAMSULOSIN HYDROCHLORIDE [Concomitant]
     Active Substance: TAMSULOSIN HYDROCHLORIDE
     Indication: Product used for unknown indication
  4. LOSARTAN POTASSIUM [Concomitant]
     Active Substance: LOSARTAN POTASSIUM
     Indication: Product used for unknown indication
  5. CARVEDILOL [Concomitant]
     Active Substance: CARVEDILOL
     Indication: Product used for unknown indication
  6. SUMATRIPTAN SUCCINATE 100 MG TABLET [Concomitant]
     Indication: Product used for unknown indication
  7. METHOTREXATE (METHOTREXATE SODIUM) [Concomitant]
     Active Substance: METHOTREXATE SODIUM
     Indication: Product used for unknown indication
  8. VITAMIN B-12 1000 MCG TABLET [Concomitant]
     Indication: Product used for unknown indication
  9. PANTOPRAZOLE SODIUM 20 MG TABLET DR [Concomitant]
     Indication: Product used for unknown indication
  10. SIMVASTATIN [Concomitant]
     Active Substance: SIMVASTATIN
     Indication: Product used for unknown indication
  11. DULOXETINE HCL 100 % POWDER [Concomitant]
     Indication: Product used for unknown indication
  12. MODERNA COVID-19 VACCINE [Concomitant]
     Active Substance: ELASOMERAN
     Indication: COVID-19 immunisation
     Route: 030
  13. LORTAB 10-300/15 SOLUTION [Concomitant]
     Indication: Product used for unknown indication
  14. ROPINIROLE HCL 0.5 MG TABLET [Concomitant]
     Indication: Product used for unknown indication
  15. CYANOCOBALAMIN [Concomitant]
     Active Substance: CYANOCOBALAMIN
     Indication: Product used for unknown indication

REACTIONS (1)
  - Pain [Unknown]

NARRATIVE: CASE EVENT DATE: 20220101
